FAERS Safety Report 7814681-3 (Version None)
Quarter: 2011Q4

REPORT INFORMATION
  Report Type: 
  Country: None (occurrence: None)
  Receive Date: 20111014
  Receipt Date: 20000630
  Transmission Date: 20120403
  Serious: Yes (Hospitalization, Other)
  Sender: FDA-Public Use
  Company Number: US-JNJFOC-20111000277

PATIENT
  Sex: Female

DRUGS (2)
  1. ZYRTEC [Suspect]
     Indication: PRURITUS
     Dosage: 10 MG EVERY DAY AND A HALF
     Route: 048
     Dates: start: 19970101
  2. ZYRTEC [Suspect]
     Route: 048

REACTIONS (2)
  - MATERNAL EXPOSURE DURING PREGNANCY [None]
  - ABORTION SPONTANEOUS [None]
